FAERS Safety Report 7345081-0 (Version None)
Quarter: 2011Q1

REPORT INFORMATION
  Report Type: 
  Country: None (occurrence: None)
  Receive Date: 20110310
  Receipt Date: 20110307
  Transmission Date: 20110831
  Serious: Yes (Other)
  Sender: FDA-Public Use
  Company Number: GB-TEVA-270227ISR

PATIENT
  Age: 74 Year
  Sex: Female

DRUGS (2)
  1. EZETIMIBE [Suspect]
     Route: 048
  2. METFORMIN [Suspect]

REACTIONS (2)
  - LACTIC ACIDOSIS [None]
  - PANCREATITIS [None]
